FAERS Safety Report 17997685 (Version 1)
Quarter: 2020Q3

REPORT INFORMATION
  Report Type: Other
  Country: DE (occurrence: DE)
  Receive Date: 20200708
  Receipt Date: 20200708
  Transmission Date: 20201103
  Serious: Yes (Other)
  Sender: FDA-Public Use
  Company Number: DE-ALCAMI_CORPORATION-USA-POI0581202000001

PATIENT
  Age: 61 Year
  Sex: Female

DRUGS (2)
  1. PYRIDOSTIGMINE [Suspect]
     Active Substance: PYRIDOSTIGMINE
     Indication: MYASTHENIA GRAVIS
     Dates: start: 2009, end: 2016
  2. AZASAN [Suspect]
     Active Substance: AZATHIOPRINE
     Indication: MYASTHENIA GRAVIS
     Dates: start: 2009, end: 2016

REACTIONS (2)
  - Myasthenia gravis [Recovering/Resolving]
  - Neuroendocrine carcinoma of the skin [Recovering/Resolving]

NARRATIVE: CASE EVENT DATE: 2016
